FAERS Safety Report 20878856 (Version 3)
Quarter: 2023Q2

REPORT INFORMATION
  Report Type: Report from Study
  Country: US (occurrence: US)
  Receive Date: 20220526
  Receipt Date: 20230630
  Transmission Date: 20230722
  Serious: Yes (Hospitalization, Other)
  Sender: FDA-Public Use
  Company Number: US-JAZZ-2022-US-017412

PATIENT
  Age: 18 Year
  Sex: Female

DRUGS (6)
  1. EPIDIOLEX [Suspect]
     Active Substance: CANNABIDIOL
     Indication: Lennox-Gastaut syndrome
     Dosage: 6 MILLILITER, BID (IN THE MORNING AND IN THE EVENING)
     Route: 048
  2. EPIDIOLEX [Suspect]
     Active Substance: CANNABIDIOL
     Indication: Autism spectrum disorder
     Dosage: 6.5 MILLILITER, EVERY 12 HOURS
  3. KEPPRA [Concomitant]
     Active Substance: LEVETIRACETAM
     Indication: Product used for unknown indication
     Dosage: UNK
  4. RISPERIDONE [Concomitant]
     Active Substance: RISPERIDONE
     Indication: Product used for unknown indication
     Dosage: UNK
  5. XCOPRI [Concomitant]
     Active Substance: CENOBAMATE
     Indication: Product used for unknown indication
     Dosage: UNK
  6. VIMPAT [Concomitant]
     Active Substance: LACOSAMIDE
     Indication: Product used for unknown indication
     Dosage: UNK

REACTIONS (3)
  - Seizure [Unknown]
  - Seizure [Unknown]
  - Off label use [Unknown]

NARRATIVE: CASE EVENT DATE: 20220413
